FAERS Safety Report 22180401 (Version 1)
Quarter: 2023Q2

REPORT INFORMATION
  Report Type: Report from Study
  Country: KR (occurrence: KR)
  Receive Date: 20230406
  Receipt Date: 20230406
  Transmission Date: 20230721
  Serious: Yes (Hospitalization)
  Sender: FDA-Public Use
  Company Number: KR-TAKEDA-2023TUS034275

PATIENT
  Age: 69 Year
  Sex: Male
  Weight: 67 kg

DRUGS (11)
  1. BRIGATINIB [Suspect]
     Active Substance: BRIGATINIB
     Indication: Non-small cell lung cancer
     Dosage: 90 MILLIGRAM, QD
     Route: 048
     Dates: start: 20210511, end: 20210517
  2. BRIGATINIB [Suspect]
     Active Substance: BRIGATINIB
     Dosage: 180 MILLIGRAM, QD
     Route: 048
     Dates: start: 20210518, end: 20210607
  3. NALOXONE HYDROCHLORIDE\OXYCODONE HYDROCHLORIDE [Concomitant]
     Active Substance: NALOXONE HYDROCHLORIDE\OXYCODONE HYDROCHLORIDE
     Indication: Lung neoplasm malignant
     Dosage: UNK
     Route: 065
     Dates: start: 20210511
  4. OXYCODONE HYDROCHLORIDE [Concomitant]
     Active Substance: OXYCODONE HYDROCHLORIDE
     Indication: Lung neoplasm malignant
     Dosage: 30 MILLIGRAM
     Route: 065
     Dates: start: 20210511
  5. ULTRACET [Concomitant]
     Active Substance: ACETAMINOPHEN\TRAMADOL HYDROCHLORIDE
     Indication: Lung neoplasm malignant
     Dosage: UNK
     Route: 065
     Dates: start: 20210511
  6. ACTIQ [Concomitant]
     Active Substance: FENTANYL CITRATE
     Indication: Lung neoplasm malignant
     Dosage: 400 MICROGRAM
     Route: 065
     Dates: start: 20210511
  7. MONTERIZINE [Concomitant]
     Indication: Rhinitis allergic
     Dosage: UNK
     Route: 065
     Dates: start: 20210511
  8. RABE [Concomitant]
     Indication: Chronic gastritis
     Dosage: 10 MILLIGRAM
     Route: 065
     Dates: start: 20210511
  9. HERBALS [Concomitant]
     Active Substance: HERBALS
     Indication: Chronic gastritis
     Dosage: UNK
     Route: 065
     Dates: start: 20210511
  10. SYNATURA [Concomitant]
     Indication: Bronchitis chronic
     Dosage: 15 MILLILITER
     Route: 065
     Dates: start: 20210511
  11. FEROBA YOU [Concomitant]
     Indication: Anaemia
     Dosage: UNK
     Route: 065
     Dates: start: 20210511

REACTIONS (1)
  - Chest pain [Recovered/Resolved]

NARRATIVE: CASE EVENT DATE: 20210604
